FAERS Safety Report 22108175 (Version 1)
Quarter: 2023Q1

REPORT INFORMATION
  Report Type: Spontaneous
  Country: US (occurrence: US)
  Receive Date: 20230317
  Receipt Date: 20230317
  Transmission Date: 20230418
  Serious: No
  Sender: FDA-Public Use
  Company Number: US-SA-SAC20230316001372

PATIENT
  Age: 24 Year
  Sex: Male

DRUGS (10)
  1. DUPIXENT [Suspect]
     Active Substance: DUPILUMAB
     Indication: Dermatitis atopic
     Dosage: UNK
     Route: 058
     Dates: start: 20181128
  2. DUPIXENT [Suspect]
     Active Substance: DUPILUMAB
     Dosage: UNK
     Route: 058
     Dates: end: 20230315
  3. ALBUTEROL [Concomitant]
     Active Substance: ALBUTEROL
  4. CLOBETASOL [Concomitant]
     Active Substance: CLOBETASOL
  5. HYDROCORTISONE [Concomitant]
     Active Substance: HYDROCORTISONE
  6. LOSARTAN [Concomitant]
     Active Substance: LOSARTAN
  7. NALTREXONE [Concomitant]
     Active Substance: NALTREXONE
  8. PREGNYL [Concomitant]
     Active Substance: CHORIOGONADOTROPIN ALFA
  9. TESTOSTERONE [Concomitant]
     Active Substance: TESTOSTERONE
  10. VYVANSE [Concomitant]
     Active Substance: LISDEXAMFETAMINE DIMESYLATE

REACTIONS (1)
  - Drug effect less than expected [Unknown]

NARRATIVE: CASE EVENT DATE: 20230315
